FAERS Safety Report 9278289 (Version 1)
Quarter: 2013Q2

REPORT INFORMATION
  Report Type: Report from Study
  Country: US (occurrence: US)
  Receive Date: 20130508
  Receipt Date: 20130508
  Transmission Date: 20140414
  Serious: Yes (Hospitalization)
  Sender: FDA-Public Use
  Company Number: US-SANOFI-AVENTIS-2013SA046070

PATIENT
  Sex: Male

DRUGS (11)
  1. CABAZITAXEL [Suspect]
     Indication: PROSTATE CANCER
     Route: 042
     Dates: start: 20130422, end: 20130422
  2. CARBOPLATIN [Suspect]
     Indication: PROSTATE CANCER
  3. ASPIRIN [Concomitant]
     Indication: CARDIAC DISORDER
     Route: 048
     Dates: start: 2010
  4. ATORVASTATIN [Concomitant]
     Indication: BLOOD CHOLESTEROL INCREASED
     Route: 048
     Dates: start: 2010
  5. CALCIUM/VITAMIN D [Concomitant]
     Route: 048
     Dates: start: 2012
  6. FISH OIL [Concomitant]
     Route: 048
     Dates: start: 2010
  7. LISINOPRIL W/HYDROCHLOROTHIAZIDE [Concomitant]
     Dosage: DOSE:20/12.5 MG
     Route: 048
     Dates: start: 2013
  8. LUPRON [Concomitant]
     Dosage: EVERY 3 MONTH
     Route: 030
     Dates: start: 201212
  9. NIACIN [Concomitant]
     Indication: NUTRITIONAL SUPPLEMENTATION
     Route: 048
     Dates: start: 2012
  10. TYLENOL [Concomitant]
     Indication: PAIN
     Route: 048
     Dates: start: 2013
  11. PREDNISONE [Concomitant]
     Route: 048
     Dates: start: 20130422

REACTIONS (3)
  - Blood sodium decreased [Unknown]
  - Nausea [Unknown]
  - Vomiting [Unknown]
